FAERS Safety Report 9704408 (Version 3)
Quarter: 2013Q4

REPORT INFORMATION
  Report Type: Spontaneous
  Country: CA (occurrence: CA)
  Receive Date: 20131122
  Receipt Date: 20131202
  Transmission Date: 20140711
  Serious: Yes (Disabling)
  Sender: FDA-Public Use
  Company Number: CA-PFIZER INC-2013300196

PATIENT
  Age: 75 Year
  Sex: Female
  Weight: 63.49 kg

DRUGS (1)
  1. CORDARONE [Suspect]
     Indication: ARRHYTHMIA
     Dosage: 200 MG, 1X/DAY
     Route: 048
     Dates: start: 20121113, end: 20130828

REACTIONS (3)
  - Visual impairment [Recovering/Resolving]
  - Diplopia [Recovering/Resolving]
  - Xanthopsia [Not Recovered/Not Resolved]
